FAERS Safety Report 8120916-2 (Version None)
Quarter: 2012Q1

REPORT INFORMATION
  Report Type: 
  Country: None (occurrence: None)
  Receive Date: 20120208
  Receipt Date: 20120126
  Transmission Date: 20120608
  Serious: Yes (Other)
  Sender: FDA-Public Use
  Company Number: US-ELI_LILLY_AND_COMPANY-US201106008893

PATIENT
  Sex: Female

DRUGS (12)
  1. FORTEO [Suspect]
     Dosage: 20 UG, QD
     Route: 065
  2. SIMVASTATIN [Concomitant]
     Dosage: 40 MG, QD
  3. FORTEO [Suspect]
     Dosage: 20 UG, QD
     Route: 065
     Dates: end: 20110814
  4. LEVOTHYROXINE SODIUM [Concomitant]
     Dosage: UNK, QD
  5. FORTEO [Suspect]
     Dosage: 20 UG, QD
     Route: 065
  6. FORTEO [Suspect]
     Indication: OSTEOPOROSIS
     Dosage: 20 UG, QD
     Route: 065
     Dates: start: 20110601
  7. TIZANIDINE HCL [Concomitant]
     Dosage: 2 DF, UNK
     Dates: end: 20110701
  8. NAPROXEN (ALEVE) [Concomitant]
     Dosage: 440 MG, QD
  9. FUMARATE DISODIUM [Concomitant]
     Dosage: 10 MG, QD
  10. MULTI-VITAMINS [Concomitant]
  11. PREMARIN [Concomitant]
     Dosage: 0.3 MG, 3/W
  12. CLEMASTINE FUMARATE [Concomitant]

REACTIONS (9)
  - BREAST MASS [None]
  - EMOTIONAL DISTRESS [None]
  - DRUG DOSE OMISSION [None]
  - RHINORRHOEA [None]
  - RENAL FAILURE CHRONIC [None]
  - PRURITUS [None]
  - INSOMNIA [None]
  - NEPHROLITHIASIS [None]
  - BLOOD CALCIUM INCREASED [None]
